FAERS Safety Report 9834944 (Version 1)
Quarter: 2014Q1

REPORT INFORMATION
  Report Type: Spontaneous
  Country: US (occurrence: US)
  Receive Date: 20140122
  Receipt Date: 20140122
  Transmission Date: 20141002
  Serious: No
  Sender: FDA-Public Use
  Company Number: US-BAUSCH-BL-2013-003818

PATIENT
  Age: 74 Year
  Sex: Female
  Weight: 70.82 kg

DRUGS (7)
  1. ALAWAY (KETOTIFEN FUMARATE OPHTHALMIC SOLUTION) [Suspect]
     Indication: EYE PRURITUS
     Dosage: 1 DROP IN RIGHT EYE; ONCE; OPHTHALMIC
     Route: 047
     Dates: start: 20130614, end: 20130614
  2. ALAWAY (KETOTIFEN FUMARATE OPHTHALMIC SOLUTION) [Suspect]
     Dosage: 1 DROP IN LEFT EYE; ONCE; OPHTHALMIC
     Route: 047
     Dates: start: 20130614, end: 20130614
  3. ROSUVASTATIN CALCIUM [Concomitant]
     Indication: BLOOD CHOLESTEROL INCREASED
  4. OMEPRAZOLE [Concomitant]
     Indication: GASTROOESOPHAGEAL REFLUX DISEASE
  5. LEVOTHYROXINE SODIUM [Concomitant]
     Indication: THYROID DISORDER
  6. QUINAPRIL [Concomitant]
     Indication: HYPERTENSION
  7. CALCIUM [Concomitant]

REACTIONS (1)
  - Instillation site pain [Recovered/Resolved]
